FAERS Safety Report 25288046 (Version 1)
Quarter: 2025Q2

REPORT INFORMATION
  Report Type: Spontaneous
  Country: US (occurrence: None)
  Receive Date: 20250509
  Receipt Date: 20250509
  Transmission Date: 20250716
  Serious: Yes (Hospitalization)
  Sender: FDA-CTU
  Company Number: None

PATIENT
  Sex: Male

DRUGS (11)
  1. LENALIDOMIDE [Suspect]
     Active Substance: LENALIDOMIDE
     Indication: Plasma cell myeloma in remission
     Dosage: TAKE 1 CAPSULE (10 MG) BY MOUTH DAILY?
     Route: 048
     Dates: start: 20250220
  2. ACETAMIN TAB 500MG [Concomitant]
  3. ACYCLOVIR [Concomitant]
     Active Substance: ACYCLOVIR
  4. ASPIRIN LOW TAB 81 MG EC [Concomitant]
  5. BUMETANIDE TAB 0.5MG [Concomitant]
  6. CARVEDILOL TAB 25MG [Concomitant]
  7. CICLOPIROX SOL 8^% [Concomitant]
  8. ACETAMINOPHEN\HYDROCODONE [Concomitant]
     Active Substance: ACETAMINOPHEN\HYDROCODONE
  9. ISOSORB MONO TAB 30MG ER [Concomitant]
  10. KP VITAMIN D [Concomitant]
  11. LOPERAMIDE CAP2MG [Concomitant]

REACTIONS (2)
  - Coronary angioplasty [None]
  - Intentional dose omission [None]
